FAERS Safety Report 8269681-9 (Version None)
Quarter: 2012Q2

REPORT INFORMATION
  Report Type: 
  Country: None (occurrence: None)
  Receive Date: 20120405
  Receipt Date: 20120403
  Transmission Date: 20120825
  Serious: Yes (Hospitalization, Other)
  Sender: FDA-Public Use
  Company Number: ADR-2011-11022

PATIENT
  Sex: Male

DRUGS (1)
  1. LIORESAL [Suspect]
     Dosage: 175 MCG, DAILY, INTRATH
     Route: 037

REACTIONS (7)
  - IRRITABILITY [None]
  - AGITATION [None]
  - SHUNT MALFUNCTION [None]
  - HYPERTONIA [None]
  - PRURITUS [None]
  - RESTLESSNESS [None]
  - MOOD SWINGS [None]
